FAERS Safety Report 4840049-8 (Version None)
Quarter: 2005Q4

REPORT INFORMATION
  Report Type: 
  Country: None (occurrence: None)
  Receive Date: 20051125
  Receipt Date: 20051110
  Transmission Date: 20060501
  Serious: Yes (Hospitalization)
  Sender: FDA-Public Use
  Company Number: 2005BI020878

PATIENT
  Age: 62 Year
  Sex: Female
  Weight: 95 kg

DRUGS (11)
  1. ZEVALIN [Suspect]
     Indication: BONE MARROW CONDITIONING REGIMEN
     Dosage: 1X; IV
     Route: 042
  2. YATRACIA (YTTRIUM (90 Y) CHLORIDE SOLUTION (YTTRIUM (90 Y)) [Suspect]
     Indication: BONE MARROW CONDITIONING REGIMEN
     Dosage: 0.4 MCI/KG; 1X; IV
     Route: 042
  3. RITUXIMAB [Concomitant]
  4. BCNU [Concomitant]
  5. ETOPOSIDE [Concomitant]
  6. FLUCONAZOLE [Concomitant]
  7. INSULIN [Concomitant]
  8. CLONIDINE [Concomitant]
  9. NADROPARIN CALCIUM [Concomitant]
  10. ARACYTINE [Concomitant]
  11. MELPHALAN [Concomitant]

REACTIONS (2)
  - FEBRILE BONE MARROW APLASIA [None]
  - PLEURAL EFFUSION [None]
